FAERS Safety Report 12884562 (Version 2)
Quarter: 2016Q4

REPORT INFORMATION
  Report Type: Report from Study
  Country: US (occurrence: US)
  Receive Date: 20161026
  Receipt Date: 20161031
  Transmission Date: 20170207
  Serious: Yes (Other)
  Sender: FDA-Public Use
  Company Number: US-GILEAD-2016-0220839

PATIENT
  Age: 54 Year
  Sex: Female

DRUGS (11)
  1. UPTRAVI [Suspect]
     Active Substance: SELEXIPAG
     Indication: PRODUCT USED FOR UNKNOWN INDICATION
     Dosage: 200 UG, BID
     Route: 065
  2. SPIRONOLACTONE. [Concomitant]
     Active Substance: SPIRONOLACTONE
  3. LEVOTHYROXINE. [Concomitant]
     Active Substance: LEVOTHYROXINE
  4. METHAZOLAMIDE. [Concomitant]
     Active Substance: METHAZOLAMIDE
  5. UPTRAVI [Suspect]
     Active Substance: SELEXIPAG
     Dosage: 400 UG, UNK
     Route: 065
     Dates: start: 20160712
  6. UPTRAVI [Suspect]
     Active Substance: SELEXIPAG
     Dosage: 600 UG, BID
     Route: 065
     Dates: start: 20160720
  7. TORSEMIDE. [Concomitant]
     Active Substance: TORSEMIDE
  8. UPTRAVI [Suspect]
     Active Substance: SELEXIPAG
     Dosage: 400 UG, BID
     Route: 065
  9. SILDENAFIL. [Concomitant]
     Active Substance: SILDENAFIL
  10. AMBRISENTAN [Suspect]
     Active Substance: AMBRISENTAN
     Indication: PULMONARY ARTERIAL HYPERTENSION
     Dosage: 10 MG, QD
     Route: 065
     Dates: start: 20120227
  11. UPTRAVI [Suspect]
     Active Substance: SELEXIPAG
     Dosage: 600 UG, UNK
     Route: 065

REACTIONS (11)
  - Intracranial pressure increased [Unknown]
  - Pain in jaw [Unknown]
  - Myalgia [Unknown]
  - Headache [Unknown]
  - Dysuria [Unknown]
  - Muscle spasms [Not Recovered/Not Resolved]
  - Gastric disorder [Unknown]
  - Renal pain [Unknown]
  - Urine odour abnormal [Unknown]
  - Middle insomnia [Unknown]
  - Nausea [Unknown]
